FAERS Safety Report 24869284 (Version 5)
Quarter: 2025Q3

REPORT INFORMATION
  Report Type: Spontaneous
  Country: EU (occurrence: EU)
  Receive Date: 20250121
  Receipt Date: 20250807
  Transmission Date: 20251021
  Serious: Yes (Hospitalization, Other)
  Sender: MYLAN
  Company Number: EU-SANDOZ-SDZ2025ES000852

PATIENT
  Age: 71 Year
  Sex: Male
  Weight: 90 kg

DRUGS (84)
  1. CYCLOSPORINE [Interacting]
     Active Substance: CYCLOSPORINE
     Indication: Pyoderma gangrenosum
     Dosage: 150 MILLIGRAM, QD
  2. CYCLOSPORINE [Interacting]
     Active Substance: CYCLOSPORINE
     Dosage: 150 MILLIGRAM, QD
  3. CYCLOSPORINE [Interacting]
     Active Substance: CYCLOSPORINE
     Dosage: 150 MILLIGRAM, QD
     Route: 065
  4. CYCLOSPORINE [Interacting]
     Active Substance: CYCLOSPORINE
     Dosage: 150 MILLIGRAM, QD
     Route: 065
  5. CYCLOSPORINE [Interacting]
     Active Substance: CYCLOSPORINE
     Dosage: 150 MILLIGRAM, BID (Q12H)
  6. CYCLOSPORINE [Interacting]
     Active Substance: CYCLOSPORINE
     Dosage: 150 MILLIGRAM, BID (Q12H)
  7. CYCLOSPORINE [Interacting]
     Active Substance: CYCLOSPORINE
     Dosage: 150 MILLIGRAM, BID (Q12H)
     Route: 065
  8. CYCLOSPORINE [Interacting]
     Active Substance: CYCLOSPORINE
     Dosage: 150 MILLIGRAM, BID (Q12H)
     Route: 065
  9. CYCLOSPORINE [Interacting]
     Active Substance: CYCLOSPORINE
  10. CYCLOSPORINE [Interacting]
     Active Substance: CYCLOSPORINE
  11. CYCLOSPORINE [Interacting]
     Active Substance: CYCLOSPORINE
     Route: 065
  12. CYCLOSPORINE [Interacting]
     Active Substance: CYCLOSPORINE
     Route: 065
  13. CYCLOSPORINE [Interacting]
     Active Substance: CYCLOSPORINE
     Dosage: 100 MILLIGRAM, QD (IN THE MORNING)
  14. CYCLOSPORINE [Interacting]
     Active Substance: CYCLOSPORINE
     Dosage: 100 MILLIGRAM, QD (IN THE MORNING)
  15. CYCLOSPORINE [Interacting]
     Active Substance: CYCLOSPORINE
     Dosage: 100 MILLIGRAM, QD (IN THE MORNING)
     Route: 065
  16. CYCLOSPORINE [Interacting]
     Active Substance: CYCLOSPORINE
     Dosage: 100 MILLIGRAM, QD (IN THE MORNING)
     Route: 065
  17. CYCLOSPORINE [Interacting]
     Active Substance: CYCLOSPORINE
     Dosage: 50 MILLIGRAM, QD (AT NIGHT)
  18. CYCLOSPORINE [Interacting]
     Active Substance: CYCLOSPORINE
     Dosage: 50 MILLIGRAM, QD (AT NIGHT)
     Route: 065
  19. CYCLOSPORINE [Interacting]
     Active Substance: CYCLOSPORINE
     Dosage: 50 MILLIGRAM, QD (AT NIGHT)
  20. CYCLOSPORINE [Interacting]
     Active Substance: CYCLOSPORINE
     Dosage: 50 MILLIGRAM, QD (AT NIGHT)
     Route: 065
  21. ATORVASTATIN\EZETIMIBE [Interacting]
     Active Substance: ATORVASTATIN\EZETIMIBE
     Indication: Hypertensive heart disease
     Dosage: 1 DOSAGE FORM, QD (40 MG-10 MG, FOR THE LAST 5 YEARS)
  22. ATORVASTATIN\EZETIMIBE [Interacting]
     Active Substance: ATORVASTATIN\EZETIMIBE
     Dosage: 1 DOSAGE FORM, QD (40 MG-10 MG, FOR THE LAST 5 YEARS)
  23. ATORVASTATIN\EZETIMIBE [Interacting]
     Active Substance: ATORVASTATIN\EZETIMIBE
     Dosage: 1 DOSAGE FORM, QD (40 MG-10 MG, FOR THE LAST 5 YEARS)
     Route: 065
  24. ATORVASTATIN\EZETIMIBE [Interacting]
     Active Substance: ATORVASTATIN\EZETIMIBE
     Dosage: 1 DOSAGE FORM, QD (40 MG-10 MG, FOR THE LAST 5 YEARS)
     Route: 065
  25. ATORVASTATIN\EZETIMIBE [Interacting]
     Active Substance: ATORVASTATIN\EZETIMIBE
     Dosage: 40 MILLIGRAM, QD (Q24H)
  26. ATORVASTATIN\EZETIMIBE [Interacting]
     Active Substance: ATORVASTATIN\EZETIMIBE
     Dosage: 40 MILLIGRAM, QD (Q24H)
  27. ATORVASTATIN\EZETIMIBE [Interacting]
     Active Substance: ATORVASTATIN\EZETIMIBE
     Dosage: 40 MILLIGRAM, QD (Q24H)
     Route: 065
  28. ATORVASTATIN\EZETIMIBE [Interacting]
     Active Substance: ATORVASTATIN\EZETIMIBE
     Dosage: 40 MILLIGRAM, QD (Q24H)
     Route: 065
  29. VERAPAMIL [Interacting]
     Active Substance: VERAPAMIL HYDROCHLORIDE
     Indication: Hypertensive heart disease
     Dosage: 240 MILLIGRAM, QD (FOR THE LAST 5 YEARS)
  30. VERAPAMIL [Interacting]
     Active Substance: VERAPAMIL HYDROCHLORIDE
     Indication: Pyoderma gangrenosum
     Dosage: 240 MILLIGRAM, QD (FOR THE LAST 5 YEARS)
     Route: 065
  31. VERAPAMIL [Interacting]
     Active Substance: VERAPAMIL HYDROCHLORIDE
     Dosage: 240 MILLIGRAM, QD (FOR THE LAST 5 YEARS)
     Route: 065
  32. VERAPAMIL [Interacting]
     Active Substance: VERAPAMIL HYDROCHLORIDE
     Dosage: 240 MILLIGRAM, QD (FOR THE LAST 5 YEARS)
  33. PREDNISONE [Concomitant]
     Active Substance: PREDNISONE
     Indication: Product used for unknown indication
     Dosage: 20 MILLIGRAM, QD
  34. PREDNISONE [Concomitant]
     Active Substance: PREDNISONE
     Dosage: 20 MILLIGRAM, QD
     Route: 065
  35. PREDNISONE [Concomitant]
     Active Substance: PREDNISONE
     Dosage: 20 MILLIGRAM, QD
     Route: 065
  36. PREDNISONE [Concomitant]
     Active Substance: PREDNISONE
     Dosage: 20 MILLIGRAM, QD
  37. METFORMIN [Concomitant]
     Active Substance: METFORMIN HYDROCHLORIDE
     Indication: Type 1 diabetes mellitus
     Dosage: 1000 MILLIGRAM, BID
  38. METFORMIN [Concomitant]
     Active Substance: METFORMIN HYDROCHLORIDE
     Dosage: 1000 MILLIGRAM, BID
     Route: 065
  39. METFORMIN [Concomitant]
     Active Substance: METFORMIN HYDROCHLORIDE
     Dosage: 1000 MILLIGRAM, BID
     Route: 065
  40. METFORMIN [Concomitant]
     Active Substance: METFORMIN HYDROCHLORIDE
     Dosage: 1000 MILLIGRAM, BID
  41. SEMAGLUTIDE [Concomitant]
     Active Substance: SEMAGLUTIDE
     Indication: Type 1 diabetes mellitus
     Dosage: 1 MILLIGRAM, QW
  42. SEMAGLUTIDE [Concomitant]
     Active Substance: SEMAGLUTIDE
     Dosage: 1 MILLIGRAM, QW
     Route: 065
  43. SEMAGLUTIDE [Concomitant]
     Active Substance: SEMAGLUTIDE
     Dosage: 1 MILLIGRAM, QW
     Route: 065
  44. SEMAGLUTIDE [Concomitant]
     Active Substance: SEMAGLUTIDE
     Dosage: 1 MILLIGRAM, QW
  45. INSULIN LISPRO [Concomitant]
     Active Substance: INSULIN LISPRO
     Indication: Type 1 diabetes mellitus
  46. INSULIN LISPRO [Concomitant]
     Active Substance: INSULIN LISPRO
     Route: 065
  47. INSULIN LISPRO [Concomitant]
     Active Substance: INSULIN LISPRO
     Route: 065
  48. INSULIN LISPRO [Concomitant]
     Active Substance: INSULIN LISPRO
  49. INSULIN ASPART [Concomitant]
     Active Substance: INSULIN ASPART
     Indication: Type 1 diabetes mellitus
  50. INSULIN ASPART [Concomitant]
     Active Substance: INSULIN ASPART
     Route: 065
  51. INSULIN ASPART [Concomitant]
     Active Substance: INSULIN ASPART
     Route: 065
  52. INSULIN ASPART [Concomitant]
     Active Substance: INSULIN ASPART
  53. APIXABAN [Concomitant]
     Active Substance: APIXABAN
     Indication: Product used for unknown indication
     Dosage: 5 MILLIGRAM, BID
  54. APIXABAN [Concomitant]
     Active Substance: APIXABAN
     Dosage: 5 MILLIGRAM, BID
     Route: 065
  55. APIXABAN [Concomitant]
     Active Substance: APIXABAN
     Dosage: 5 MILLIGRAM, BID
     Route: 065
  56. APIXABAN [Concomitant]
     Active Substance: APIXABAN
     Dosage: 5 MILLIGRAM, BID
  57. HYDROCHLOROTHIAZIDE\OLMESARTAN MEDOXOMIL [Concomitant]
     Active Substance: HYDROCHLOROTHIAZIDE\OLMESARTAN MEDOXOMIL
     Indication: Essential hypertension
     Dosage: 1 DOSAGE FORM, QD (40 MG-25 MG)
  58. HYDROCHLOROTHIAZIDE\OLMESARTAN MEDOXOMIL [Concomitant]
     Active Substance: HYDROCHLOROTHIAZIDE\OLMESARTAN MEDOXOMIL
     Indication: Hypertension
     Dosage: 1 DOSAGE FORM, QD (40 MG-25 MG)
     Route: 065
  59. HYDROCHLOROTHIAZIDE\OLMESARTAN MEDOXOMIL [Concomitant]
     Active Substance: HYDROCHLOROTHIAZIDE\OLMESARTAN MEDOXOMIL
     Dosage: 1 DOSAGE FORM, QD (40 MG-25 MG)
     Route: 065
  60. HYDROCHLOROTHIAZIDE\OLMESARTAN MEDOXOMIL [Concomitant]
     Active Substance: HYDROCHLOROTHIAZIDE\OLMESARTAN MEDOXOMIL
     Dosage: 1 DOSAGE FORM, QD (40 MG-25 MG)
  61. DOXAZOSIN [Concomitant]
     Active Substance: DOXAZOSIN MESYLATE
     Indication: Hypertensive heart disease
     Dosage: 4 MILLIGRAM, QD
  62. DOXAZOSIN [Concomitant]
     Active Substance: DOXAZOSIN MESYLATE
     Dosage: 4 MILLIGRAM, QD
     Route: 065
  63. DOXAZOSIN [Concomitant]
     Active Substance: DOXAZOSIN MESYLATE
     Dosage: 4 MILLIGRAM, QD
     Route: 065
  64. DOXAZOSIN [Concomitant]
     Active Substance: DOXAZOSIN MESYLATE
     Dosage: 4 MILLIGRAM, QD
  65. OMEPRAZOLE [Concomitant]
     Active Substance: OMEPRAZOLE
     Indication: Product used for unknown indication
     Dosage: 20 MILLIGRAM, QD
  66. OMEPRAZOLE [Concomitant]
     Active Substance: OMEPRAZOLE
     Dosage: 20 MILLIGRAM, QD
     Route: 065
  67. OMEPRAZOLE [Concomitant]
     Active Substance: OMEPRAZOLE
     Dosage: 20 MILLIGRAM, QD
     Route: 065
  68. OMEPRAZOLE [Concomitant]
     Active Substance: OMEPRAZOLE
     Dosage: 20 MILLIGRAM, QD
  69. ADALIMUMAB [Concomitant]
     Active Substance: ADALIMUMAB
     Indication: Product used for unknown indication
  70. ADALIMUMAB [Concomitant]
     Active Substance: ADALIMUMAB
  71. ADALIMUMAB [Concomitant]
     Active Substance: ADALIMUMAB
     Route: 065
  72. ADALIMUMAB [Concomitant]
     Active Substance: ADALIMUMAB
     Route: 065
  73. ADALIMUMAB [Concomitant]
     Active Substance: ADALIMUMAB
     Dosage: 40 MILLIGRAM, QW (EVERY 7 DAYS)
  74. ADALIMUMAB [Concomitant]
     Active Substance: ADALIMUMAB
     Dosage: 40 MILLIGRAM, QW (EVERY 7 DAYS)
  75. ADALIMUMAB [Concomitant]
     Active Substance: ADALIMUMAB
     Dosage: 40 MILLIGRAM, QW (EVERY 7 DAYS)
     Route: 065
  76. ADALIMUMAB [Concomitant]
     Active Substance: ADALIMUMAB
     Dosage: 40 MILLIGRAM, QW (EVERY 7 DAYS)
     Route: 065
  77. TRIAMCINOLONE [Concomitant]
     Active Substance: TRIAMCINOLONE
     Indication: Pyoderma gangrenosum
  78. TRIAMCINOLONE [Concomitant]
     Active Substance: TRIAMCINOLONE
     Route: 026
  79. TRIAMCINOLONE [Concomitant]
     Active Substance: TRIAMCINOLONE
     Route: 026
  80. TRIAMCINOLONE [Concomitant]
     Active Substance: TRIAMCINOLONE
  81. INFLIXIMAB [Concomitant]
     Active Substance: INFLIXIMAB
     Indication: Pyoderma gangrenosum
  82. INFLIXIMAB [Concomitant]
     Active Substance: INFLIXIMAB
     Route: 065
  83. INFLIXIMAB [Concomitant]
     Active Substance: INFLIXIMAB
     Route: 065
  84. INFLIXIMAB [Concomitant]
     Active Substance: INFLIXIMAB

REACTIONS (4)
  - Rhabdomyolysis [Recovered/Resolved]
  - Acute kidney injury [Recovered/Resolved]
  - Myopathy [Recovered/Resolved]
  - Drug interaction [Unknown]
